FAERS Safety Report 4687323-6 (Version None)
Quarter: 2005Q2

REPORT INFORMATION
  Report Type: 
  Country: None (occurrence: None)
  Receive Date: 20050609
  Receipt Date: 20050526
  Transmission Date: 20051028
  Serious: Yes (Other)
  Sender: FDA-Public Use
  Company Number: 2005079796

PATIENT
  Age: 48 Year
  Sex: Male
  Weight: 65.7716 kg

DRUGS (1)
  1. DESITIN DIAPER RASH (ZINC OXIDE) [Suspect]
     Indication: SKIN GRAFT
     Dosage: ABOUT 1/4 INCH BID, TOPICAL
     Route: 061
     Dates: start: 20050101, end: 20050525

REACTIONS (3)
  - SKIN DISCOLOURATION [None]
  - SKIN GRAFT INFECTION [None]
  - WOUND DRAINAGE [None]
